FAERS Safety Report 5863617-3 (Version None)
Quarter: 2008Q3

REPORT INFORMATION
  Report Type: 
  Country: None (occurrence: None)
  Receive Date: 20080828
  Receipt Date: 20080820
  Transmission Date: 20090109
  Serious: Yes (Other)
  Sender: FDA-Public Use
  Company Number: US-ELI_LILLY_AND_COMPANY-US200808004240

PATIENT
  Sex: Female

DRUGS (4)
  1. HUMALOG [Suspect]
     Dates: start: 20050101
  2. LANTUS [Concomitant]
  3. GENGRAF [Concomitant]
  4. PREDNISONE TAB [Concomitant]
     Indication: GOUT

REACTIONS (4)
  - BILIARY CIRRHOSIS [None]
  - IMPAIRED HEALING [None]
  - OPEN WOUND [None]
  - URINARY TRACT INFECTION [None]
